FAERS Safety Report 8600022-0 (Version None)
Quarter: 2012Q3

REPORT INFORMATION
  Report Type: 
  Country: None (occurrence: None)
  Receive Date: 20120816
  Receipt Date: 20120809
  Transmission Date: 20120928
  Serious: Yes (Life-Threatening, Other)
  Sender: FDA-Public Use
  Company Number: CHPA2012US018237

PATIENT
  Age: 78 Year
  Sex: Female

DRUGS (3)
  1. OXYCODONE HCL [Suspect]
     Dosage: UNK, UNK
  2. FOSAMAX [Concomitant]
     Dosage: UNK, UNK
     Route: 048
     Dates: start: 20120722
  3. MYOFLEX ANALGESIC CREME [Suspect]
     Indication: PAIN
     Dosage: UNK, BID
     Route: 061

REACTIONS (3)
  - FEELING ABNORMAL [None]
  - NERVE INJURY [None]
  - BACK INJURY [None]
